FAERS Safety Report 7715965-X (Version None)
Quarter: 2011Q3

REPORT INFORMATION
  Report Type: 
  Country: None (occurrence: None)
  Receive Date: 20110823
  Receipt Date: 20110811
  Transmission Date: 20111222
  Serious: Yes (Life-Threatening)
  Sender: FDA-Public Use
  Company Number: 1000022818

PATIENT
  Age: 69 Year
  Sex: Female

DRUGS (5)
  1. TIORFAN (RACECADOTRIL) (100 MILLIGRAM) [Suspect]
     Indication: DIARRHOEA
     Dosage: 200 MG (100 MG, 2 IN 1 D), ORAL
     Route: 048
     Dates: start: 20110623, end: 20110629
  2. FOSFOMYCIN (FOSFOMYCIN TROMETAMOL) (3 GRAM, GRANULATE) [Suspect]
     Indication: URINARY TRACT INFECTION
     Dosage: 3 G (3 GM, ONCE, ORAL
     Route: 048
     Dates: start: 20110623, end: 20110623
  3. MABTHERA (RITUXIMA) (100 MILLIGRAM) [Suspect]
     Indication: B-CELL LYMPHOMA STAGE I
     Dosage: 12.5 MG/M2 (375 MG/M2, 1 IN 1 M), INTRAVENOUS
     Route: 042
  4. LOPERAMIDE [Suspect]
     Indication: DIARRHOEA
     Dosage: 3 MG 91 MG, 3 IN 1 D), ORAL
     Route: 048
     Dates: start: 20110627, end: 20110701
  5. NORFLOXACIN [Suspect]
     Indication: DIARRHOEA
     Dosage: 800 MG (400 MG, 2 IN 1 D), ORAL
     Route: 048
     Dates: start: 20110627, end: 20110704

REACTIONS (8)
  - LEUKOPENIA [None]
  - C-REACTIVE PROTEIN INCREASED [None]
  - LYMPHOPENIA [None]
  - URINARY TRACT INFECTION [None]
  - DIARRHOEA [None]
  - MACROCYTOSIS [None]
  - THROMBOCYTOPENIA [None]
  - AGRANULOCYTOSIS [None]
